FAERS Safety Report 17274786 (Version 4)
Quarter: 2020Q1

REPORT INFORMATION
  Report Type: Report from Study
  Country: None (occurrence: TR)
  Receive Date: 20200115
  Receipt Date: 20200212
  Transmission Date: 20200409
  Serious: Yes (Hospitalization, Other)
  Sender: FDA-Public Use
  Company Number: TR-ABBVIE-20K-161-3228024-00

PATIENT
  Sex: Male
  Weight: 104 kg

DRUGS (4)
  1. DOPADEX [Concomitant]
     Indication: PARKINSON^S DISEASE
     Dosage: 50/200 MG
     Route: 048
     Dates: start: 20191126
  2. CORASPIN [Concomitant]
     Active Substance: ASPIRIN
     Indication: ISCHAEMIC HEART DISEASE PROPHYLAXIS
     Route: 048
     Dates: start: 2018
  3. DUODOPA [Suspect]
     Active Substance: CARBIDOPA\LEVODOPA
     Indication: PARKINSON^S DISEASE
     Dosage: MD (ML): 6.00 CD (ML): 4.00 ED (ML): 1.50
     Route: 050
     Dates: start: 20191126
  4. BELOC [Concomitant]
     Indication: ISCHAEMIC HEART DISEASE PROPHYLAXIS
     Route: 048
     Dates: start: 2018

REACTIONS (7)
  - Asthenia [Recovered/Resolved]
  - Haemoglobin decreased [Recovered/Resolved]
  - Vomiting [Recovered/Resolved]
  - Melaena [Recovered/Resolved]
  - Nausea [Recovered/Resolved]
  - Haematocrit decreased [Recovered/Resolved]
  - Gastrointestinal haemorrhage [Recovered/Resolved]
